FAERS Safety Report 16965773 (Version 1)
Quarter: 2019Q4

REPORT INFORMATION
  Report Type: Spontaneous
  Country: PR (occurrence: PR)
  Receive Date: 20191028
  Receipt Date: 20191028
  Transmission Date: 20200122
  Serious: Yes (Hospitalization)
  Sender: FDA-Public Use
  Company Number: PR-PFIZER INC-2019463386

PATIENT
  Age: 84 Year
  Sex: Female
  Weight: 72.56 kg

DRUGS (1)
  1. IBRANCE [Suspect]
     Active Substance: PALBOCICLIB
     Indication: BREAST CANCER FEMALE
     Dosage: 100 MG, CYCLIC (1 CAPSULE 21 DAYS DAILY AND 7 DAYS OFF)
     Route: 048
     Dates: start: 20190521

REACTIONS (2)
  - Abdominal pain upper [Unknown]
  - Diverticulitis [Unknown]

NARRATIVE: CASE EVENT DATE: 20191023
